FAERS Safety Report 14590550 (Version 2)
Quarter: 2019Q2

REPORT INFORMATION
  Report Type: Spontaneous
  Country: TR (occurrence: TR)
  Receive Date: 20180302
  Receipt Date: 20190507
  Transmission Date: 20190711
  Serious: Yes (Death)
  Sender: FDA-Public Use
  Company Number: PHHY2018TR033992

PATIENT
  Age: 60 Year
  Sex: Male

DRUGS (1)
  1. ONEPTUS [Suspect]
     Active Substance: SACUBITRIL\VALSARTAN
     Indication: PRODUCT USED FOR UNKNOWN INDICATION
     Dosage: UNK
     Route: 065

REACTIONS (3)
  - Blood pressure decreased [Unknown]
  - Respiratory failure [Fatal]
  - Wrong technique in product usage process [Unknown]
